FAERS Safety Report 7788415-5 (Version None)
Quarter: 2011Q3

REPORT INFORMATION
  Report Type: 
  Country: None (occurrence: None)
  Receive Date: 20110919
  Receipt Date: 20110908
  Transmission Date: 20111222
  Serious: Yes (Hospitalization)
  Sender: FDA-Public Use
  Company Number: 2011SP003011

PATIENT
  Sex: Female

DRUGS (3)
  1. LATUDA [Suspect]
     Indication: SCHIZOPHRENIA
     Dosage: 80 MG; QD; ORAL
     Route: 048
     Dates: start: 20110607
  2. COGENTIN [Concomitant]
  3. ZYPREXA [Concomitant]

REACTIONS (2)
  - PULMONARY EMBOLISM [None]
  - SEPSIS [None]
